FAERS Safety Report 5384136-7 (Version None)
Quarter: 2007Q3

REPORT INFORMATION
  Report Type: 
  Country: None (occurrence: None)
  Receive Date: 20070711
  Receipt Date: 20070706
  Transmission Date: 20080115
  Serious: Yes (Death)
  Sender: FDA-Public Use
  Company Number: AUWYE868204MAR07

PATIENT
  Sex: Male
  Weight: 60 kg

DRUGS (12)
  1. TIGECYCLINE [Suspect]
     Indication: PNEUMONIA STAPHYLOCOCCAL
     Route: 042
     Dates: start: 20070114, end: 20070122
  2. SALBUTAMOL [Concomitant]
     Dosage: 100 MG AS REQUIRED
     Route: 055
  3. MS CONTIN [Concomitant]
     Route: 048
     Dates: start: 20070119, end: 20070122
  4. AMITRIPTYLINE HCL [Concomitant]
     Route: 048
     Dates: start: 20070119, end: 20070122
  5. MORPHINE [Concomitant]
     Dosage: AS REQUIRED
  6. GABAPENTIN [Concomitant]
     Route: 048
     Dates: start: 20070119, end: 20070122
  7. DEXAMETHASONE 0.5MG TAB [Concomitant]
     Route: 048
     Dates: start: 20070114, end: 20070122
  8. ESOMEPRAZOLE MAGNESIUM [Concomitant]
     Route: 048
     Dates: start: 20070114, end: 20070114
  9. TEMAZEPAM [Concomitant]
     Route: 048
     Dates: start: 20070114, end: 20070122
  10. PARACETAMOL [Concomitant]
     Dosage: UNKNOWN
  11. SERETIDE [Concomitant]
     Dosage: 500/50
     Route: 055
     Dates: start: 20070117, end: 20070122
  12. TRANEXAMIC ACID [Concomitant]
     Route: 048
     Dates: start: 20070119, end: 20070122

REACTIONS (2)
  - EXSANGUINATION [None]
  - HAEMOPTYSIS [None]
